FAERS Safety Report 12781635 (Version 3)
Quarter: 2016Q4

REPORT INFORMATION
  Report Type: Spontaneous
  Country: TW (occurrence: TW)
  Receive Date: 20160926
  Receipt Date: 20161214
  Transmission Date: 20170207
  Serious: Yes (Life-Threatening, Hospitalization, Other)
  Sender: FDA-Public Use
  Company Number: TW-MYLANLABS-2016M1041002

PATIENT

DRUGS (10)
  1. SALINE                             /00075401/ [Concomitant]
     Active Substance: SODIUM CHLORIDE
     Indication: PRODUCT USED FOR UNKNOWN INDICATION
  2. FLUPENTIXOL [Concomitant]
     Active Substance: FLUPENTIXOL
     Indication: SCHIZOPHRENIA
     Dosage: 0.5 MG, TID
  3. MGO [Concomitant]
     Active Substance: MAGNESIUM OXIDE
     Indication: PSYCHOTIC DISORDER
     Dosage: 500 MG, TID
  4. CEFAMEZIN                          /00288502/ [Concomitant]
     Active Substance: CEFAZOLIN
     Indication: PSYCHOTIC DISORDER
     Dosage: 1000 MG, Q8H
  5. ULEX                               /00145502/ [Concomitant]
     Indication: PSYCHOTIC DISORDER
     Dosage: 250 MG, QID
  6. DIAZEPAM. [Concomitant]
     Active Substance: DIAZEPAM
     Indication: SCHIZOPHRENIA
     Dosage: 5 MG, HS
  7. CLOZAPINE. [Suspect]
     Active Substance: CLOZAPINE
     Indication: SCHIZOPHRENIA
     Dosage: 100 MG, UNK
     Route: 048
  8. MESYREL [Concomitant]
     Active Substance: TRAZODONE HYDROCHLORIDE
     Indication: PSYCHOTIC DISORDER
     Dosage: 50 MG, QD
  9. AMBROXOL [Concomitant]
     Active Substance: AMBROXOL
     Indication: PSYCHOTIC DISORDER
     Dosage: 500 MG, TID
  10. CLOZAPINE. [Suspect]
     Active Substance: CLOZAPINE
     Dosage: 100 MG, UNK
     Route: 048
     Dates: start: 19920307

REACTIONS (12)
  - Pupillary reflex impaired [Unknown]
  - Discomfort [Unknown]
  - Vomiting [Unknown]
  - White blood cell count increased [Unknown]
  - Aphasia [Unknown]
  - Salivary hypersecretion [Recovering/Resolving]
  - Treatment noncompliance [Unknown]
  - Cough [Unknown]
  - Loss of consciousness [Recovering/Resolving]
  - Blood pressure systolic increased [Unknown]
  - Nausea [Unknown]
  - Miosis [Unknown]

NARRATIVE: CASE EVENT DATE: 199203
